FAERS Safety Report 10235184 (Version 2)
Quarter: 2014Q2

REPORT INFORMATION
  Report Type: Spontaneous
  Country: US (occurrence: None)
  Receive Date: 20140611
  Receipt Date: 20140623
  Transmission Date: 20141212
  Serious: Yes (Hospitalization)
  Sender: FDA-Public Use
  Company Number: 2014-US-007030

PATIENT
  Age: 70 Year
  Sex: Female

DRUGS (3)
  1. XYREM [Suspect]
     Indication: NARCOLEPSY
     Route: 048
     Dates: start: 200311, end: 2005
  2. XYREM [Suspect]
     Indication: SOMNOLENCE
     Route: 048
     Dates: start: 200311, end: 2005
  3. XYREM [Suspect]
     Indication: CATAPLEXY
     Route: 048
     Dates: start: 200311, end: 2005

REACTIONS (1)
  - Hospitalisation [None]
